FAERS Safety Report 22304540 (Version 1)
Quarter: 2023Q2

REPORT INFORMATION
  Report Type: Spontaneous
  Country: US (occurrence: None)
  Receive Date: 20230509
  Receipt Date: 20230509
  Transmission Date: 20230722
  Serious: No
  Sender: FDA-Public Use
  Company Number: None

PATIENT
  Age: 30 Year
  Sex: Female
  Weight: 85.5 kg

DRUGS (4)
  1. LIDOCAINE HYDROCHLORIDE [Suspect]
     Active Substance: LIDOCAINE HYDROCHLORIDE
     Indication: Tonsillitis
     Dosage: FREQUENCY : EVERY 4 HOURS;?
     Route: 048
     Dates: start: 20230112, end: 20230113
  2. PROTONIX [Concomitant]
     Active Substance: PANTOPRAZOLE SODIUM
  3. HYDROXYZINE [Concomitant]
     Active Substance: HYDROXYZINE HYDROCHLORIDE
  4. VITAMINS [Concomitant]
     Active Substance: VITAMINS

REACTIONS (3)
  - Vomiting [None]
  - Product odour abnormal [None]
  - Product physical consistency issue [None]

NARRATIVE: CASE EVENT DATE: 20230112
